FAERS Safety Report 11976941 (Version 2)
Quarter: 2016Q1

REPORT INFORMATION
  Report Type: Spontaneous
  Country: FR (occurrence: FR)
  Receive Date: 20160129
  Receipt Date: 20160209
  Transmission Date: 20160526
  Serious: Yes (Life-Threatening, Hospitalization, Other)
  Sender: FDA-Public Use
  Company Number: FR-PFIZER INC-2016043622

PATIENT
  Age: 70 Year
  Sex: Male

DRUGS (3)
  1. RAMIPRIL MYLAN [Suspect]
     Active Substance: RAMIPRIL
     Dosage: UNK
     Route: 048
     Dates: start: 201508, end: 20150901
  2. LASILIX [Interacting]
     Active Substance: FUROSEMIDE
     Dosage: UNK
     Route: 048
     Dates: start: 201508, end: 20150901
  3. ATACAND [Interacting]
     Active Substance: CANDESARTAN CILEXETIL
     Dosage: UNK
     Route: 048
     Dates: start: 201508, end: 20150901

REACTIONS (7)
  - Consciousness fluctuating [Unknown]
  - Drug interaction [Unknown]
  - Acute kidney injury [Recovered/Resolved]
  - Diarrhoea [Unknown]
  - Hypoglycaemia [Recovered/Resolved]
  - Vomiting [Unknown]
  - Anuria [Recovered/Resolved]

NARRATIVE: CASE EVENT DATE: 201508
